FAERS Safety Report 13184665 (Version 2)
Quarter: 2018Q2

REPORT INFORMATION
  Report Type: Report from Study
  Country: US (occurrence: US)
  Receive Date: 20170203
  Receipt Date: 20180524
  Transmission Date: 20180711
  Serious: Yes (Other)
  Sender: FDA-Public Use
  Company Number: PHEH2017US002901

PATIENT
  Sex: Female

DRUGS (1)
  1. GILENYA [Suspect]
     Active Substance: FINGOLIMOD HYDROCHLORIDE
     Indication: MULTIPLE SCLEROSIS
     Dosage: 0.5 MG, QD
     Route: 048

REACTIONS (8)
  - Blindness unilateral [Unknown]
  - Pain [Unknown]
  - Diplopia [Unknown]
  - Vision blurred [Unknown]
  - Foot fracture [Unknown]
  - Balance disorder [Unknown]
  - Fall [Unknown]
  - Multiple sclerosis relapse [Unknown]
